FAERS Safety Report 9173715 (Version 1)
Quarter: 2013Q1

REPORT INFORMATION
  Report Type: Spontaneous
  Country: JP (occurrence: JP)
  Receive Date: 20130320
  Receipt Date: 20130320
  Transmission Date: 20140127
  Serious: Yes (Other)
  Sender: FDA-Public Use
  Company Number: JP-ASTELLAS-2013JP004034

PATIENT
  Age: 58 Year
  Sex: Female

DRUGS (2)
  1. TACROLIMUS OINTMENT [Suspect]
     Indication: PLASMACYTOSIS
     Dosage: UNK
     Route: 061
     Dates: start: 20111006
  2. BETAMETHASONE BUTYRATE PROPIONATE [Concomitant]
     Indication: PLASMACYTOSIS
     Dosage: UNK
     Route: 061
     Dates: start: 20111006

REACTIONS (2)
  - Drug ineffective for unapproved indication [Unknown]
  - Plasmacytosis [Not Recovered/Not Resolved]
